FAERS Safety Report 10299939 (Version 4)
Quarter: 2015Q4

REPORT INFORMATION
  Report Type: Report from Study
  Country: BR (occurrence: BR)
  Receive Date: 20140711
  Receipt Date: 20151204
  Transmission Date: 20160304
  Serious: Yes (Hospitalization, Disabling, Other)
  Sender: FDA-Public Use
  Company Number: BR-ABBVIE-14P-020-1256214-00

PATIENT
  Age: 23 Year
  Sex: Male
  Weight: 80 kg

DRUGS (1)
  1. HUMIRA [Suspect]
     Active Substance: ADALIMUMAB
     Indication: CROHN^S DISEASE
     Route: 058
     Dates: start: 20090101

REACTIONS (14)
  - Pneumonia [Recovering/Resolving]
  - Enteral nutrition [Not Recovered/Not Resolved]
  - Aphasia [Not Recovered/Not Resolved]
  - Pain [Unknown]
  - Road traffic accident [Not Recovered/Not Resolved]
  - Depressed mood [Not Recovered/Not Resolved]
  - Seizure [Recovered/Resolved]
  - Mechanical ventilation [Not Recovered/Not Resolved]
  - Thrombosis [Recovering/Resolving]
  - Seizure [Recovered/Resolved]
  - Weight increased [Not Recovered/Not Resolved]
  - Bedridden [Not Recovered/Not Resolved]
  - Craniocerebral injury [Not Recovered/Not Resolved]
  - Lower limb fracture [Not Recovered/Not Resolved]

NARRATIVE: CASE EVENT DATE: 2013
